FAERS Safety Report 16725381 (Version 2)
Quarter: 2019Q3

REPORT INFORMATION
  Report Type: Spontaneous
  Country: US (occurrence: US)
  Receive Date: 20190821
  Receipt Date: 20190821
  Transmission Date: 20191005
  Serious: Yes (Other)
  Sender: FDA-Public Use
  Company Number: US-GILEAD-2019-0424376

PATIENT
  Age: 72 Year
  Sex: Male

DRUGS (1)
  1. HARVONI [Suspect]
     Active Substance: LEDIPASVIR\SOFOSBUVIR
     Indication: CHRONIC HEPATITIS C
     Dosage: UNK
     Route: 065
     Dates: start: 20150126, end: 201507

REACTIONS (9)
  - Haemorrhagic diathesis [Not Recovered/Not Resolved]
  - Liver disorder [Not Recovered/Not Resolved]
  - Haemorrhage [Recovered/Resolved]
  - Hepatitis C [Not Recovered/Not Resolved]
  - Dental restoration failure [Unknown]
  - Hepatic necrosis [Unknown]
  - Cholecystectomy [Unknown]
  - Treatment failure [Not Recovered/Not Resolved]
  - Thrombocytopenia [Not Recovered/Not Resolved]

NARRATIVE: CASE EVENT DATE: 201510
